FAERS Safety Report 20201543 (Version 1)
Quarter: 2021Q4

REPORT INFORMATION
  Report Type: Spontaneous
  Country: HU (occurrence: HU)
  Receive Date: 20211217
  Receipt Date: 20211217
  Transmission Date: 20220304
  Serious: Yes (Hospitalization, Other)
  Sender: FDA-Public Use
  Company Number: HU-SA-2021SA371992

PATIENT
  Age: 40 Year
  Sex: Female

DRUGS (6)
  1. CLOZAPINE [Suspect]
     Active Substance: CLOZAPINE
     Indication: Product used for unknown indication
     Dosage: UNK
     Route: 065
     Dates: start: 20190905, end: 20190905
  2. SUCRALFATE [Suspect]
     Active Substance: SUCRALFATE
     Indication: Product used for unknown indication
     Dosage: UNK
     Route: 048
     Dates: start: 20190907
  3. NAPROXEN [Suspect]
     Active Substance: NAPROXEN
     Indication: Headache
     Dosage: UNK
     Dates: start: 20190907
  4. LEVOTHYROXINE SODIUM [Suspect]
     Active Substance: LEVOTHYROXINE SODIUM
     Indication: Hypothyroidism
     Dosage: 75 MICROGRAM, QD
  5. PRADAXA [Concomitant]
     Active Substance: DABIGATRAN ETEXILATE MESYLATE
     Indication: Thrombosis
     Dosage: 150 MG, BID
     Dates: start: 20190905
  6. ENOXAPARIN SODIUM [Concomitant]
     Active Substance: ENOXAPARIN SODIUM
     Indication: Thrombosis
     Dosage: UNK
     Dates: start: 20190902, end: 20190905

REACTIONS (14)
  - Blood pressure fluctuation [Recovered/Resolved]
  - Headache [Recovered/Resolved]
  - Eye swelling [Recovering/Resolving]
  - Loss of consciousness [Recovered/Resolved]
  - Burning sensation [Recovered/Resolved]
  - Cold sweat [Recovered/Resolved]
  - Swelling face [Recovering/Resolving]
  - Wrong product administered [Unknown]
  - Mouth swelling [Recovering/Resolving]
  - Blood pressure decreased [Recovered/Resolved]
  - Peripheral coldness [Recovered/Resolved]
  - Chromaturia [Recovered/Resolved]
  - Disorientation [Recovered/Resolved]
  - Tremor [Recovered/Resolved]

NARRATIVE: CASE EVENT DATE: 20190905
